FAERS Safety Report 14176077 (Version 1)
Quarter: 2017Q4

REPORT INFORMATION
  Report Type: Spontaneous
  Country: US (occurrence: US)
  Receive Date: 20171109
  Receipt Date: 20171109
  Transmission Date: 20180321
  Serious: No
  Sender: FDA-Public Use
  Company Number: US-MISSION PHARMACAL COMPANY-2033725

PATIENT
  Age: 81 Year
  Sex: Male

DRUGS (1)
  1. LITHOSTAT [Suspect]
     Active Substance: ACETOHYDROXAMIC ACID
     Indication: RENAL LITHIASIS PROPHYLAXIS
     Route: 048
     Dates: start: 20171013, end: 20171103

REACTIONS (1)
  - Rash [Not Recovered/Not Resolved]
